FAERS Safety Report 10711186 (Version 1)
Quarter: 2015Q1

REPORT INFORMATION
  Report Type: Spontaneous
  Country: US (occurrence: US)
  Receive Date: 20150114
  Receipt Date: 20150114
  Transmission Date: 20150721
  Serious: Yes (Death)
  Sender: FDA-Public Use
  Company Number: US-BAYER-2015-003803

PATIENT
  Age: 23 Year
  Sex: Male

DRUGS (4)
  1. ROMILAR [Suspect]
     Active Substance: DEXTROMETHORPHAN HYDROBROMIDE
  2. ETHANOL [Suspect]
     Active Substance: ALCOHOL
  3. HEROIN [Suspect]
     Active Substance: DIACETYLMORPHINE
  4. CHLORPHENIRAMINE [Suspect]
     Active Substance: CHLORPHENIRAMINE

REACTIONS (1)
  - Drug abuse [Fatal]
